FAERS Safety Report 18206447 (Version 1)
Quarter: 2020Q3

REPORT INFORMATION
  Report Type: Spontaneous
  Country: TR (occurrence: TR)
  Receive Date: 20200828
  Receipt Date: 20200828
  Transmission Date: 20201103
  Serious: Yes (Hospitalization)
  Sender: FDA-Public Use
  Company Number: TR-QUAGEN-2020QUALIT00067

PATIENT
  Age: 6 Year
  Sex: Male

DRUGS (8)
  1. ATOMOXETINE. [Interacting]
     Active Substance: ATOMOXETINE HYDROCHLORIDE
     Indication: RHEUMATIC FEVER
  2. HALOPERIDOL. [Concomitant]
     Active Substance: HALOPERIDOL
     Indication: RHEUMATIC FEVER
  3. VALPROATE [Concomitant]
     Active Substance: VALPROIC ACID
     Indication: RHEUMATIC FEVER
  4. VALPROATE [Concomitant]
     Active Substance: VALPROIC ACID
     Indication: SYDENHAM^S CHOREA
  5. METHYLPHENIDATE HYDROCHLORIDE ORAL SOLUTION [Suspect]
     Active Substance: METHYLPHENIDATE HYDROCHLORIDE
     Indication: ATTENTION DEFICIT HYPERACTIVITY DISORDER
     Dosage: OSMOTIC?CONTROLLED RELEASE ORAL DELIVERY SYSTEM
     Route: 048
  6. BENZYLPENICILLIN [Concomitant]
     Active Substance: PENICILLIN G
  7. HALOPERIDOL. [Concomitant]
     Active Substance: HALOPERIDOL
     Indication: SYDENHAM^S CHOREA
  8. BENZYLPENICILLIN [Concomitant]
     Active Substance: PENICILLIN G
     Indication: RHEUMATIC FEVER
     Dosage: 1.200.000 IU

REACTIONS (1)
  - Chorea [Recovered/Resolved]
